FAERS Safety Report 8549395 (Version 5)
Quarter: 2013Q1

REPORT INFORMATION
  Report Type: Spontaneous
  Country: AR (occurrence: AR)
  Receive Date: 20120507
  Receipt Date: 20130129
  Transmission Date: 20140127
  Serious: Yes (Hospitalization)
  Sender: FDA-Public Use
  Company Number: AR-BIOGENIDEC-2012BI015091

PATIENT
  Sex: Female

DRUGS (4)
  1. AVONEX [Suspect]
     Indication: MULTIPLE SCLEROSIS
     Route: 030
     Dates: start: 201105
  2. CLONAZEPAM [Concomitant]
     Indication: ANXIETY
  3. TRAMADOL [Concomitant]
     Indication: PAIN
  4. CEFALEXIN [Concomitant]

REACTIONS (4)
  - Lymphoma [Unknown]
  - Benign salivary gland neoplasm [Unknown]
  - Incision site complication [Unknown]
  - Dental care [Unknown]
